FAERS Safety Report 6648293-4 (Version None)
Quarter: 2010Q1

REPORT INFORMATION
  Report Type: 
  Country: None (occurrence: None)
  Receive Date: 20100318
  Receipt Date: 20100308
  Transmission Date: 20100710
  Serious: Yes (Other)
  Sender: FDA-Public Use
  Company Number: 1000012532

PATIENT
  Sex: Female

DRUGS (1)
  1. ESCITALOPRAM [Suspect]

REACTIONS (1)
  - OCULAR HYPERTENSION [None]
